FAERS Safety Report 22093041 (Version 1)
Quarter: 2023Q1

REPORT INFORMATION
  Report Type: Report from Study
  Country: CA (occurrence: CA)
  Receive Date: 20230314
  Receipt Date: 20230314
  Transmission Date: 20230417
  Serious: Yes (Other)
  Sender: FDA-Public Use
  Company Number: CA-002147023-NVSC2023CA053492

PATIENT
  Age: 22 Year
  Sex: Male

DRUGS (1)
  1. HYRIMOZ [Suspect]
     Active Substance: ADALIMUMAB-ADAZ
     Indication: Hidradenitis
     Dosage: 40 MG
     Route: 058
     Dates: start: 20221125

REACTIONS (6)
  - Epilepsy [Unknown]
  - Autism spectrum disorder [Unknown]
  - Hidradenitis [Unknown]
  - Condition aggravated [Unknown]
  - Weight decreased [Unknown]
  - Speech disorder [Unknown]
